FAERS Safety Report 22817269 (Version 3)
Quarter: 2025Q1

REPORT INFORMATION
  Report Type: Spontaneous
  Country: US (occurrence: US)
  Receive Date: 20230812
  Receipt Date: 20250203
  Transmission Date: 20250409
  Serious: No
  Sender: LUPIN
  Company Number: US-LUPIN PHARMACEUTICALS INC.-2023-06578

PATIENT

DRUGS (5)
  1. ALBUTEROL SULFATE [Suspect]
     Active Substance: ALBUTEROL SULFATE
     Indication: Asthma
     Dosage: UNK, BID (2 PUFFS)
     Dates: start: 202306
  2. AMLODIPINE BESYLATE [Concomitant]
     Active Substance: AMLODIPINE BESYLATE
     Indication: Hypertension
     Route: 065
  3. MONTELUKAST [Concomitant]
     Active Substance: MONTELUKAST
     Indication: Hypersensitivity
     Route: 065
  4. LORATADINE [Concomitant]
     Active Substance: LORATADINE
     Indication: Hypersensitivity
     Route: 065
  5. SYMBICORT [Concomitant]
     Active Substance: BUDESONIDE\FORMOTEROL FUMARATE DIHYDRATE
     Indication: Asthma
     Route: 065

REACTIONS (3)
  - Device deposit issue [Unknown]
  - Wrong technique in device usage process [Unknown]
  - No adverse event [Unknown]
